FAERS Safety Report 15790626 (Version 1)
Quarter: 2019Q1

REPORT INFORMATION
  Report Type: Spontaneous
  Country: US (occurrence: US)
  Receive Date: 20190104
  Receipt Date: 20190104
  Transmission Date: 20190417
  Serious: No
  Sender: FDA-Public Use
  Company Number: US-ALKERMES INC.-ALK-2018-007083

PATIENT
  Age: 55 Year
  Sex: Male
  Weight: 77.98 kg

DRUGS (3)
  1. VIVITROL [Suspect]
     Active Substance: NALTREXONE
     Indication: ALCOHOLISM
     Dosage: 380 MG, QMO
     Route: 030
     Dates: start: 20181219
  2. OTHER THERAPEUTIC PRODUCTS [Concomitant]
     Active Substance: UNSPECIFIED INGREDIENT
     Indication: HYPOTHYROIDISM
     Dosage: UNK
  3. LITHIUM. [Concomitant]
     Active Substance: LITHIUM
     Indication: PRODUCT USED FOR UNKNOWN INDICATION
     Dosage: UNK

REACTIONS (4)
  - Toothache [Not Recovered/Not Resolved]
  - Tooth infection [Not Recovered/Not Resolved]
  - Tooth fracture [Not Recovered/Not Resolved]
  - Dental caries [Not Recovered/Not Resolved]

NARRATIVE: CASE EVENT DATE: 201812
